FAERS Safety Report 5138630-4 (Version None)
Quarter: 2006Q4

REPORT INFORMATION
  Report Type: 
  Country: None (occurrence: None)
  Receive Date: 20061030
  Receipt Date: 20061017
  Transmission Date: 20070319
  Serious: Yes (Hospitalization)
  Sender: FDA-Public Use
  Company Number: JP-JPN-A200604237

PATIENT
  Age: 43 Year
  Sex: Female
  Weight: 48 kg

DRUGS (6)
  1. PAXIL [Suspect]
     Indication: DEPRESSION
     Dosage: 20MG PER DAY
     Route: 048
     Dates: start: 20040101, end: 20061016
  2. SEROQUEL [Concomitant]
     Indication: DEPRESSION
     Route: 048
     Dates: start: 20040101
  3. LEXOTAN [Concomitant]
     Indication: DEPRESSION
     Route: 048
     Dates: start: 20040101
  4. DEPAS [Concomitant]
     Indication: DEPRESSION
     Route: 048
     Dates: start: 20040101
  5. LENDORMIN [Concomitant]
     Indication: DEPRESSION
     Route: 048
     Dates: start: 20040101
  6. ACINON [Concomitant]
     Indication: GASTRITIS
     Route: 048
     Dates: start: 20040101

REACTIONS (7)
  - DIARRHOEA [None]
  - FALL [None]
  - GASTROINTESTINAL DISORDER [None]
  - HYPERHIDROSIS [None]
  - HYPOTHERMIA [None]
  - LOSS OF CONSCIOUSNESS [None]
  - VOMITING [None]
